FAERS Safety Report 4590876-X (Version None)
Quarter: 2005Q1

REPORT INFORMATION
  Report Type: 
  Country: None (occurrence: None)
  Receive Date: 20050225
  Receipt Date: 20040601
  Transmission Date: 20050727
  Serious: No
  Sender: FDA-Public Use
  Company Number: US-GLAXOSMITHKLINE-A0512857A

PATIENT
  Sex: Male

DRUGS (8)
  1. ZIAGEN [Suspect]
     Indication: HIV INFECTION
     Dosage: 300MG TWICE PER DAY
     Route: 048
     Dates: start: 20040330
  2. SUSTIVA [Suspect]
  3. VIRAMUNE [Concomitant]
  4. EPIVIR [Concomitant]
  5. VIREAD [Concomitant]
  6. KLONOPIN [Concomitant]
  7. CLARITIN [Concomitant]
  8. PREVACID [Concomitant]

REACTIONS (15)
  - ANXIETY [None]
  - ARTHRALGIA [None]
  - DIZZINESS [None]
  - DYSPNOEA [None]
  - GASTROOESOPHAGEAL REFLUX DISEASE [None]
  - HEADACHE [None]
  - LIVER DISORDER [None]
  - MUSCLE TIGHTNESS [None]
  - NASOPHARYNGITIS [None]
  - NAUSEA [None]
  - PAIN [None]
  - PERIPHERAL COLDNESS [None]
  - PYREXIA [None]
  - SENSATION OF BLOOD FLOW [None]
  - VOMITING [None]
